FAERS Safety Report 23627930 (Version 1)
Quarter: 2024Q1

REPORT INFORMATION
  Report Type: Spontaneous
  Country: US (occurrence: None)
  Receive Date: 20240313
  Receipt Date: 20240313
  Transmission Date: 20240410
  Serious: Yes (Other)
  Sender: FDA-Public Use
  Company Number: None

PATIENT
  Age: 67 Year
  Sex: Female
  Weight: 78.75 kg

DRUGS (13)
  1. ATORVASTATIN CALCIUM [Suspect]
     Active Substance: ATORVASTATIN CALCIUM
     Indication: Low density lipoprotein increased
     Dosage: 30 TABLETS AT BEDTIME ORAL
     Route: 048
     Dates: start: 20240308
  2. HYDROXYZINE [Concomitant]
     Active Substance: HYDROXYZINE HYDROCHLORIDE
  3. PRAZOSIN [Concomitant]
     Active Substance: PRAZOSIN
  4. FAMOTIDINE [Concomitant]
     Active Substance: FAMOTIDINE
  5. HYDROCODONE [Concomitant]
     Active Substance: HYDROCODONE
  6. PREGABALIN [Concomitant]
     Active Substance: PREGABALIN
  7. ROPINIROLE [Concomitant]
     Active Substance: ROPINIROLE
  8. METOPROLOL SUCCINATE [Concomitant]
     Active Substance: METOPROLOL SUCCINATE
  9. PANTORAZOLE EC [Concomitant]
  10. VYVANSE [Concomitant]
     Active Substance: LISDEXAMFETAMINE DIMESYLATE
  11. LEVOTHYROXINE [Concomitant]
     Active Substance: LEVOTHYROXINE\LEVOTHYROXINE SODIUM
  12. BISACODYL [Concomitant]
     Active Substance: BISACODYL
  13. VITAMIN D3 [Concomitant]
     Active Substance: CHOLECALCIFEROL

REACTIONS (14)
  - Brain fog [None]
  - Fatigue [None]
  - Balance disorder [None]
  - Disturbance in attention [None]
  - Muscular weakness [None]
  - Fatigue [None]
  - Impaired driving ability [None]
  - Oral mucosal blistering [None]
  - Lip swelling [None]
  - Swelling face [None]
  - Paraesthesia [None]
  - Therapy change [None]
  - Therapy cessation [None]
  - Hypersomnia [None]

NARRATIVE: CASE EVENT DATE: 20240308
